FAERS Safety Report 5339410-7 (Version None)
Quarter: 2007Q2

REPORT INFORMATION
  Report Type: 
  Country: None (occurrence: None)
  Receive Date: 20070525
  Receipt Date: 20070514
  Transmission Date: 20071010
  Serious: Yes (Hospitalization)
  Sender: FDA-Public Use
  Company Number: T200700533

PATIENT
  Age: 66 Year
  Sex: Male
  Weight: 70 kg

DRUGS (7)
  1. OPTIRAY 300 [Suspect]
     Indication: COMPUTERISED TOMOGRAM
     Dosage: 100 ML, SINGLE, INTRAVENOUS
     Route: 042
     Dates: start: 20070502, end: 20070502
  2. PENTAERYTHIRITOL TETRANITRATE TAB [Concomitant]
  3. TOREM /01036501/ (TORASEMIDE) [Concomitant]
  4. NOVALGIN /00039501/ (METAMIZOLE SODIUM) [Concomitant]
  5. CALCIUM (CALCIUM) [Concomitant]
  6. ROCEPHIN [Concomitant]
  7. MAGNESIUM (MAGNESIUM) [Concomitant]

REACTIONS (2)
  - DIALYSIS [None]
  - RENAL FAILURE ACUTE [None]
